FAERS Safety Report 9018082 (Version 1)
Quarter: 2013Q1

REPORT INFORMATION
  Report Type: Spontaneous
  Country: FR (occurrence: FR)
  Receive Date: 20130117
  Receipt Date: 20130117
  Transmission Date: 20140127
  Serious: Yes (Hospitalization)
  Sender: FDA-Public Use
  Company Number: PHHY2013FR003299

PATIENT
  Sex: Male

DRUGS (21)
  1. RIMACTANE [Suspect]
     Indication: SEPTIC ARTHRITIS STAPHYLOCOCCAL
     Dosage: 3 DF, UNK
     Route: 048
     Dates: start: 20121012, end: 20121026
  2. OFLOCET [Suspect]
     Indication: SEPTIC ARTHRITIS STAPHYLOCOCCAL
     Dosage: 400 MG, UNK
     Route: 048
     Dates: start: 20120928, end: 20121026
  3. LOVENOX [Suspect]
     Route: 058
     Dates: start: 20120925, end: 20121025
  4. OXACILLIN [Concomitant]
     Indication: SEPTIC ARTHRITIS STAPHYLOCOCCAL
     Dosage: 8 G
     Route: 042
     Dates: start: 20120928, end: 20121012
  5. ENALAPRIL [Concomitant]
  6. EUPANTOL [Concomitant]
  7. LASILIX [Concomitant]
  8. DIFFU K [Concomitant]
  9. ACEBUTOLOL [Concomitant]
  10. CREON [Concomitant]
  11. NATISPRAY [Concomitant]
  12. NOVOMIX [Concomitant]
  13. ZOLPIDEM [Concomitant]
  14. CALCIUM + VIT D [Concomitant]
  15. AERIUS [Concomitant]
  16. DOLIPRANE [Concomitant]
  17. ATARAX [Concomitant]
  18. SERESTA [Concomitant]
  19. SPECIAFOLDINE [Concomitant]
  20. UVEDOSE [Concomitant]
  21. VITAMIN B1 AND B6 [Concomitant]

REACTIONS (3)
  - Arthralgia [Unknown]
  - Renal failure acute [Recovering/Resolving]
  - Platelet count decreased [Recovered/Resolved]
